FAERS Safety Report 20917664 (Version 1)
Quarter: 2022Q2

REPORT INFORMATION
  Report Type: Spontaneous
  Country: JP (occurrence: JP)
  Receive Date: 20220606
  Receipt Date: 20220606
  Transmission Date: 20220721
  Serious: Yes (Hospitalization, Other)
  Sender: FDA-Public Use
  Company Number: JP-ATLANTIDE PHARMACEUTICALS AG-2022ATL000044

PATIENT
  Age: 72 Year
  Sex: Male
  Weight: 64 kg

DRUGS (1)
  1. CEFTRIAXONE [Suspect]
     Active Substance: CEFTRIAXONE
     Indication: Diverticulitis
     Dosage: 2 GRAM, QD, 6 DAYS
     Route: 065

REACTIONS (2)
  - Gallbladder necrosis [Recovered/Resolved]
  - Cholecystitis [Recovered/Resolved]
